FAERS Safety Report 5140234-4 (Version None)
Quarter: 2006Q4

REPORT INFORMATION
  Report Type: 
  Country: None (occurrence: None)
  Receive Date: 20061026
  Receipt Date: 20061026
  Transmission Date: 20070319
  Serious: No
  Sender: FDA-Public Use
  Company Number: None

PATIENT
  Age: 64 Year
  Sex: Male
  Weight: 72.5755 kg

DRUGS (1)
  1. VISIPAQUE 320 [Suspect]
     Indication: COMPUTERISED TOMOGRAM THORAX
     Dosage: 100 ML 2CC/SECOND IV
     Route: 042

REACTIONS (1)
  - URTICARIA [None]
